FAERS Safety Report 9281151 (Version 1)
Quarter: 2013Q2

REPORT INFORMATION
  Report Type: Spontaneous
  Country: US (occurrence: None)
  Receive Date: 20130508
  Receipt Date: 20130508
  Transmission Date: 20140414
  Serious: Yes (Other)
  Sender: FDA-Public Use
  Company Number: None

PATIENT
  Age: 49 None
  Sex: Female
  Weight: 111 kg

DRUGS (11)
  1. INSULIN ASPART [Suspect]
     Indication: HYPERKALAEMIA
     Dosage: 10 UNITS, ONCE, IV
     Route: 042
     Dates: start: 20110404
  2. ASPIRIN [Concomitant]
  3. CALCIUM ACETATE [Concomitant]
  4. CHLOROTHIAZIDE [Concomitant]
  5. CLOPIDOGREL [Concomitant]
  6. DOCUSATE [Concomitant]
  7. FUROSEMIDE [Concomitant]
  8. HEPARIN [Concomitant]
  9. HYDROCORTISONE [Concomitant]
  10. LEVOTHYROXINE [Concomitant]
  11. METOPROLOL [Concomitant]

REACTIONS (1)
  - Hypoglycaemia [None]
